FAERS Safety Report 8976449 (Version 1)
Quarter: 2012Q4

REPORT INFORMATION
  Report Type: 
  Country: IT (occurrence: IT)
  Receive Date: 20121220
  Receipt Date: 20121220
  Transmission Date: 20130627
  Serious: Yes (Other)
  Sender: FDA-Public Use
  Company Number: IT-JNJFOC-20121206891

PATIENT
  Age: 48 Year
  Sex: Female
  Weight: 114 kg

DRUGS (5)
  1. TOPAMAX [Suspect]
     Indication: PRODUCT USED FOR UNKNOWN INDICATION
     Route: 048
  2. TOPAMAX [Suspect]
     Indication: PRODUCT USED FOR UNKNOWN INDICATION
     Route: 048
     Dates: start: 20121211
  3. ANAFRANIL [Suspect]
     Indication: SELF INJURIOUS BEHAVIOUR
     Route: 048
  4. FLUOXETINE [Suspect]
     Indication: SELF INJURIOUS BEHAVIOUR
     Route: 048
     Dates: start: 20121211
  5. ALPRAZOLAM [Suspect]
     Indication: SELF INJURIOUS BEHAVIOUR
     Route: 048
     Dates: start: 20121211

REACTIONS (3)
  - Self injurious behaviour [Unknown]
  - Overdose [Unknown]
  - Sopor [Unknown]
